FAERS Safety Report 15385713 (Version 2)
Quarter: 2018Q4

REPORT INFORMATION
  Report Type: Other
  Country: GB (occurrence: US)
  Receive Date: 20180914
  Receipt Date: 20181231
  Transmission Date: 20190204
  Serious: Yes (Hospitalization, Other)
  Sender: FDA-Public Use
  Company Number: GB-DIMETHAID UK LIMITED-DIM-002474-2018

PATIENT
  Age: 48 Year
  Sex: Female

DRUGS (3)
  1. DICLOFENAC SODIUM. [Suspect]
     Active Substance: DICLOFENAC SODIUM
     Indication: RHEUMATOID ARTHRITIS
     Dosage: 50 MG, DAILY
     Route: 065
  2. METFORMIN [Concomitant]
     Active Substance: METFORMIN HYDROCHLORIDE
     Indication: PRODUCT USED FOR UNKNOWN INDICATION
     Dosage: 500 MG, EVERY 12 HOURS
     Route: 065
  3. GARLIC. [Concomitant]
     Active Substance: GARLIC
     Indication: PRODUCT USED FOR UNKNOWN INDICATION
     Dosage: UNK UNK, QD
     Route: 065

REACTIONS (14)
  - Gallbladder oedema [Unknown]
  - Ocular icterus [Unknown]
  - Pruritus [Unknown]
  - Inappropriate schedule of product administration [Recovered/Resolved]
  - Drug-induced liver injury [Recovering/Resolving]
  - Hepatic necrosis [Recovering/Resolving]
  - Hepatitis [Recovering/Resolving]
  - Product use in unapproved indication [Recovered/Resolved]
  - Prescription drug used without a prescription [Recovered/Resolved]
  - Abdominal pain upper [Unknown]
  - Jaundice [Unknown]
  - Yellow skin [Unknown]
  - Nausea [Unknown]
  - Product use issue [Recovered/Resolved]
